FAERS Safety Report 14601603 (Version 2)
Quarter: 2018Q1

REPORT INFORMATION
  Report Type: Spontaneous
  Country: DE (occurrence: DE)
  Receive Date: 20180306
  Receipt Date: 20180307
  Transmission Date: 20180509
  Serious: Yes (Hospitalization, Other)
  Sender: FDA-Public Use
  Company Number: DE-UCBSA-2018008559

PATIENT
  Age: 27 Year
  Sex: Male

DRUGS (1)
  1. KEPPRA [Suspect]
     Active Substance: LEVETIRACETAM
     Indication: PRODUCT USED FOR UNKNOWN INDICATION
     Dosage: UNK

REACTIONS (13)
  - Bruxism [Unknown]
  - Fatigue [Recovering/Resolving]
  - Muscle twitching [Unknown]
  - Hypersomnia [Recovering/Resolving]
  - Aggression [Recovering/Resolving]
  - Micturition urgency [Unknown]
  - Off label use [Unknown]
  - Suicidal ideation [Recovering/Resolving]
  - Neoplasm malignant [Unknown]
  - Personality change [Recovering/Resolving]
  - Cyanosis [Unknown]
  - Overdose [Unknown]
  - Seizure [Unknown]
